FAERS Safety Report 23983750 (Version 1)
Quarter: 2024Q2

REPORT INFORMATION
  Report Type: Spontaneous
  Country: JP (occurrence: JP)
  Receive Date: 20240618
  Receipt Date: 20240618
  Transmission Date: 20240716
  Serious: Yes (Hospitalization)
  Sender: FDA-Public Use
  Company Number: JP-Vifor (International) Inc.-VIT-2024-05160

PATIENT

DRUGS (3)
  1. TAVNEOS [Suspect]
     Active Substance: AVACOPAN
     Indication: Goodpasture^s syndrome
     Dosage: UNK
     Route: 048
  2. CYCLOPHOSPHAMIDE [Concomitant]
     Active Substance: CYCLOPHOSPHAMIDE
     Indication: Goodpasture^s syndrome
     Dosage: UNK
  3. RITUXAN [Concomitant]
     Active Substance: RITUXIMAB
     Indication: Goodpasture^s syndrome
     Dosage: UNK
     Route: 040

REACTIONS (3)
  - Goodpasture^s syndrome [Unknown]
  - Dysphagia [Unknown]
  - Off label use [Unknown]
